FAERS Safety Report 12113985 (Version 19)
Quarter: 2021Q1

REPORT INFORMATION
  Report Type: Spontaneous
  Country: US (occurrence: US)
  Receive Date: 20160225
  Receipt Date: 20210208
  Transmission Date: 20210419
  Serious: Yes (Hospitalization)
  Sender: FDA-Public Use
  Company Number: US-PFIZER INC-2016082802

PATIENT
  Age: 62 Year
  Sex: Male

DRUGS (7)
  1. LYRICA [Suspect]
     Active Substance: PREGABALIN
     Indication: FIBROMYALGIA
     Dosage: 100 MG, 3X/DAY
     Route: 048
     Dates: start: 201602
  2. LIPITOR [Concomitant]
     Active Substance: ATORVASTATIN CALCIUM
     Dosage: UNK
  3. LYRICA [Suspect]
     Active Substance: PREGABALIN
     Dosage: 1 DF, DAILY
  4. LYRICA [Suspect]
     Active Substance: PREGABALIN
     Dosage: 3 DF, DAILY (CUT DOWN FROM 3 PILLS TO 2 THEN TO 1 PER DAY)
  5. LYRICA [Suspect]
     Active Substance: PREGABALIN
     Dosage: 100 MG, 3X/DAY
     Route: 048
  6. LYRICA [Suspect]
     Active Substance: PREGABALIN
     Indication: NEUROPATHY PERIPHERAL
     Dosage: 50 MG, 3X/DAY
     Dates: start: 2015
  7. LYRICA [Suspect]
     Active Substance: PREGABALIN
     Indication: PAIN
     Dosage: 2 DF, DAILY

REACTIONS (17)
  - Intentional product misuse [Unknown]
  - Rash [Unknown]
  - Anxiety [Unknown]
  - Pruritus [Unknown]
  - Frustration tolerance decreased [Unknown]
  - Blood cholesterol increased [Unknown]
  - Peripheral swelling [Unknown]
  - Gait disturbance [Unknown]
  - Movement disorder [Unknown]
  - Headache [Unknown]
  - Therapeutic product effect incomplete [Unknown]
  - Pain [Not Recovered/Not Resolved]
  - Loss of personal independence in daily activities [Unknown]
  - Lacrimation increased [Unknown]
  - Arthralgia [Unknown]
  - Insomnia [Unknown]
  - Somnolence [Unknown]

NARRATIVE: CASE EVENT DATE: 2015
